FAERS Safety Report 6584658-7 (Version None)
Quarter: 2010Q1

REPORT INFORMATION
  Report Type: 
  Country: None (occurrence: None)
  Receive Date: 20100217
  Receipt Date: 20100208
  Transmission Date: 20100710
  Serious: Yes (Hospitalization)
  Sender: FDA-Public Use
  Company Number: TW-WYE-H13273210

PATIENT
  Sex: Male
  Weight: 68 kg

DRUGS (9)
  1. TEMSIROLIMUS [Suspect]
     Indication: RENAL CELL CARCINOMA
     Route: 042
     Dates: start: 20091211, end: 20100121
  2. ZOLPIDEM [Concomitant]
     Indication: INSOMNIA
     Dosage: NOT PROVIDED
     Dates: start: 20090328
  3. BENZYDAMINE HYDROCHLORIDE [Concomitant]
     Indication: MUCOSAL INFLAMMATION
     Dosage: NOT PROVIDED
     Dates: start: 20081218
  4. ESOMEPRAZOLE [Concomitant]
     Indication: GASTRIC ULCER
     Dosage: NOT PROVIDED
     Dates: start: 20091103
  5. FELODIPINE [Concomitant]
     Indication: HYPERTENSION
     Dosage: NOT PROVIDED
     Dates: start: 20040101
  6. LOSARTAN POTASSIUM [Concomitant]
     Indication: HYPERTENSION
     Dosage: NOT PROVIDED
     Dates: start: 20040101
  7. ULTRACET [Concomitant]
     Indication: ORAL PAIN
     Dosage: NOT PROVIDED
     Dates: start: 20100121
  8. BEVACIZUMAB [Suspect]
     Indication: RENAL CELL CARCINOMA
     Route: 042
     Dates: start: 20091211, end: 20100121
  9. ERGOTAMINE TARTRATE AND CAFFEINE [Concomitant]
     Indication: HEADACHE
     Dosage: NOT PROVIDED
     Dates: start: 20090910

REACTIONS (1)
  - ILEAL ULCER PERFORATION [None]
